FAERS Safety Report 7673348-5 (Version None)
Quarter: 2011Q3

REPORT INFORMATION
  Report Type: 
  Country: None (occurrence: None)
  Receive Date: 20110810
  Receipt Date: 20110801
  Transmission Date: 20111222
  Serious: Yes (Other)
  Sender: FDA-Public Use
  Company Number: US-JNJFOC-20110801274

PATIENT
  Sex: Female

DRUGS (4)
  1. WELLBUTRIN [Concomitant]
     Indication: DEPRESSION
     Dosage: 1 IN EVENING
     Route: 048
  2. KLONOPIN [Concomitant]
     Indication: ANXIETY
     Route: 048
  3. FENTANYL [Suspect]
     Indication: PAIN
     Route: 062
  4. WELLBUTRIN [Concomitant]
     Dosage: 450MG/ 2 IN MORNING
     Route: 048

REACTIONS (4)
  - TRANSIENT ISCHAEMIC ATTACK [None]
  - DERMATITIS CONTACT [None]
  - SPEECH DISORDER [None]
  - CEREBROVASCULAR ACCIDENT [None]
